FAERS Safety Report 8856460 (Version 2)
Quarter: 2013Q1

REPORT INFORMATION
  Report Type: Spontaneous
  Country: FR (occurrence: None)
  Receive Date: 20121018
  Receipt Date: 20121031
  Transmission Date: 20140127
  Serious: Yes (Hospitalization)
  Sender: FDA-Public Use
  Company Number: ACO_32324_2012

PATIENT
  Age: 59 Year
  Sex: Female

DRUGS (7)
  1. FAMPRIDINE [Suspect]
     Indication: MULTIPLE SCLEROSIS
     Route: 048
     Dates: start: 20120709
  2. PROZAC (FLUOXETINE HYDROCHLORIDE) [Concomitant]
  3. XYZALL (LEVOCETRIZINE DIHYDROCHLORIDE) [Concomitant]
  4. TOPALGIC (TRAMADOL HYDROCHLORIDE) [Concomitant]
  5. DAFAIGAN (PARACETAMOL) [Concomitant]
  6. LIORESAL (BACLOFEN) [Concomitant]
  7. ACUPAN (NEFOPAM HYDROCHLORIDE) [Concomitant]

REACTIONS (4)
  - Vertebral foraminal stenosis [None]
  - Sciatica [None]
  - Exostosis [None]
  - Intervertebral disc protrusion [None]
